FAERS Safety Report 8321648-8 (Version None)
Quarter: 2012Q2

REPORT INFORMATION
  Report Type: 
  Country: None (occurrence: None)
  Receive Date: 20120430
  Receipt Date: 20120409
  Transmission Date: 20120825
  Serious: No
  Sender: FDA-Public Use
  Company Number: US-BAYER-2012-040218

PATIENT
  Age: 58 Year
  Sex: Female
  Weight: 59.864 kg

DRUGS (11)
  1. VITAMIN D [Concomitant]
  2. CRAN-MAX [Concomitant]
     Dosage: 500 MG, UNK
  3. VITAMIN C [Concomitant]
     Dosage: 100 MG, UNK
  4. BETASERON [Suspect]
     Dosage: 0.25 MG, QOD
     Route: 058
  5. CALCIUM [Concomitant]
     Dosage: 600
  6. NITROFURAN [Concomitant]
     Dosage: 100 MG, UNK
  7. FOSAMAX [Concomitant]
     Dosage: 10 MG, UNK
  8. IMIPRAMINE HCL [Concomitant]
     Dosage: 50 MG, UNK
  9. GABAPENTIN [Concomitant]
     Dosage: 100 MG, UNK
  10. ASPIRIN [Concomitant]
     Dosage: 81 MG, UNK
  11. VITAMIN D [Concomitant]
     Dosage: 50000 UNT

REACTIONS (1)
  - NO ADVERSE EVENT [None]
